FAERS Safety Report 4561241-6 (Version None)
Quarter: 2005Q1

REPORT INFORMATION
  Report Type: 
  Country: None (occurrence: None)
  Receive Date: 20050121
  Receipt Date: 20050112
  Transmission Date: 20050727
  Serious: Yes (Death)
  Sender: FDA-Public Use
  Company Number: 1364

PATIENT
  Sex: Female

DRUGS (1)
  1. AMNESTEEM [Suspect]
     Indication: BRAIN NEOPLASM
     Dates: start: 20040426, end: 20040901

REACTIONS (2)
  - HYPOAESTHESIA [None]
  - MALIGNANT NEOPLASM PROGRESSION [None]
